FAERS Safety Report 6535430-5 (Version None)
Quarter: 2010Q1

REPORT INFORMATION
  Report Type: 
  Country: None (occurrence: None)
  Receive Date: 20100111
  Receipt Date: 20100111
  Transmission Date: 20100710
  Serious: Yes (Other)
  Sender: FDA-Public Use
  Company Number: None

PATIENT
  Age: 59 Year
  Sex: Male
  Weight: 74.8435 kg

DRUGS (1)
  1. LAMICTAL [Suspect]
     Indication: NEUROPATHY PERIPHERAL
     Dosage: 25MG 4 PILLS (100MG) BEFORE BEDTIME 047
     Route: 048
     Dates: start: 20091212, end: 20091223

REACTIONS (5)
  - DECREASED APPETITE [None]
  - FREQUENT BOWEL MOVEMENTS [None]
  - OEDEMA PERIPHERAL [None]
  - POLLAKIURIA [None]
  - URTICARIA [None]
